FAERS Safety Report 4415298-3 (Version None)
Quarter: 2004Q3

REPORT INFORMATION
  Report Type: 
  Country: None (occurrence: None)
  Receive Date: 20040730
  Receipt Date: 20040719
  Transmission Date: 20050211
  Serious: Yes (Life-Threatening)
  Sender: FDA-Public Use
  Company Number: 207937

PATIENT
  Age: 32 Year
  Sex: Male

DRUGS (2)
  1. MABTHERA (RITUXIMAB) CONC FOR SOLUTION FOR INFUSION [Suspect]
     Indication: EXTRANODAL MARGINAL ZONE B-CELL LYMPHOMA (MALT TYPE)
     Dosage: INTRAVENOUS
     Route: 042
  2. CHLORAMBUCIL (CHLORAMBUCIL) [Suspect]
     Indication: EXTRANODAL MARGINAL ZONE B-CELL LYMPHOMA (MALT TYPE)
     Dosage: ORAL
     Route: 048

REACTIONS (5)
  - CARDIAC ARREST [None]
  - DISEASE PROGRESSION [None]
  - HAEMODIALYSIS [None]
  - HYPERKALAEMIA [None]
  - TUMOUR LYSIS SYNDROME [None]
